FAERS Safety Report 9943562 (Version 2)
Quarter: 2014Q1

REPORT INFORMATION
  Report Type: Report from Study
  Country: US (occurrence: US)
  Receive Date: 20140303
  Receipt Date: 20140303
  Transmission Date: 20141002
  Serious: Yes (Hospitalization, Other)
  Sender: FDA-Public Use
  Company Number: US-ABBVIE-13P-163-1048066-00

PATIENT
  Age: 49 Year
  Sex: Male
  Weight: 86.26 kg

DRUGS (11)
  1. HUMIRA [Suspect]
     Indication: CROHN^S DISEASE
     Route: 058
     Dates: start: 2005, end: 2007
  2. HUMIRA [Suspect]
     Route: 058
     Dates: start: 200806, end: 200809
  3. HUMIRA [Suspect]
     Dates: end: 2009
  4. CIMZIA [Suspect]
     Indication: CROHN^S DISEASE
     Dates: start: 2009
  5. TYLENOL [Concomitant]
     Indication: PRODUCT USED FOR UNKNOWN INDICATION
  6. DAMAGE CONTROL MASTER VITAMINS [Concomitant]
     Indication: PRODUCT USED FOR UNKNOWN INDICATION
  7. IMURAN [Concomitant]
     Indication: CROHN^S DISEASE
     Dates: end: 2009
  8. IMODIUM [Concomitant]
     Indication: DIARRHOEA
  9. VICODIN [Concomitant]
     Indication: PRODUCT USED FOR UNKNOWN INDICATION
  10. UNKNOWN VITAMIN [Concomitant]
     Indication: PRODUCT USED FOR UNKNOWN INDICATION
  11. IMODIUM [Concomitant]
     Indication: PRODUCT USED FOR UNKNOWN INDICATION

REACTIONS (5)
  - Crohn^s disease [Recovered/Resolved]
  - Abdominal pain upper [Unknown]
  - Influenza like illness [Recovered/Resolved]
  - Drug ineffective [Unknown]
  - Adverse event [Unknown]
